FAERS Safety Report 5683546-8 (Version None)
Quarter: 2008Q1

REPORT INFORMATION
  Report Type: 
  Country: None (occurrence: None)
  Receive Date: 20080326
  Receipt Date: 20080317
  Transmission Date: 20080703
  Serious: Yes (Hospitalization)
  Sender: FDA-Public Use
  Company Number: 18749

PATIENT
  Age: 7 Year
  Sex: Male
  Weight: 23 kg

DRUGS (2)
  1. ACYCLOVIR [Suspect]
     Indication: ENCEPHALITIS HERPES
     Dosage: 400 MG IV
     Route: 042
     Dates: start: 20080215, end: 20080219
  2. CEFOTAXIME [Concomitant]

REACTIONS (4)
  - DYSGEUSIA [None]
  - ENCEPHALOPATHY [None]
  - LETHARGY [None]
  - RENAL FAILURE [None]
